FAERS Safety Report 13920915 (Version 1)
Quarter: 2017Q3

REPORT INFORMATION
  Report Type: Spontaneous
  Country: PT (occurrence: PT)
  Receive Date: 20170830
  Receipt Date: 20170830
  Transmission Date: 20171127
  Serious: Yes (Other)
  Sender: FDA-Public Use
  Company Number: PHHY2017PT117952

PATIENT
  Sex: Female
  Weight: 58 kg

DRUGS (3)
  1. YASMINELLE [Concomitant]
     Active Substance: DROSPIRENONE
     Indication: ORAL CONTRACEPTION
     Dosage: 1 DF, QD
     Route: 048
  2. AMOXICILLINA E ACIDO CLAVULANICO RATIOPHARM [Suspect]
     Active Substance: AMOXICILLIN\CLAVULANATE POTASSIUM
     Indication: TOOTH INFECTION
     Dosage: 1 DF, BID
     Route: 048
  3. AMOXICILLIN SODIUM+POTASSIUM CLAVULANATE SANDOZ [Suspect]
     Active Substance: AMOXICILLIN\CLAVULANATE POTASSIUM
     Indication: TOOTH INFECTION
     Dosage: 1 DF, BID (12 HOURLY)
     Route: 048

REACTIONS (3)
  - Lipase increased [Recovered/Resolved]
  - Amylase increased [Recovered/Resolved]
  - Abdominal pain upper [Recovered/Resolved]
